FAERS Safety Report 10830860 (Version 1)
Quarter: 2015Q1

REPORT INFORMATION
  Report Type: Report from Study
  Country: US (occurrence: US)
  Receive Date: 20150219
  Receipt Date: 20150219
  Transmission Date: 20150721
  Serious: No
  Sender: FDA-Public Use
  Company Number: US-ABBVIE-14P-163-1192060-00

PATIENT
  Age: 39 Year
  Sex: Female

DRUGS (13)
  1. HUMIRA [Suspect]
     Active Substance: ADALIMUMAB
     Indication: COLITIS ULCERATIVE
     Dates: start: 201301, end: 201310
  2. HUMALOG [Concomitant]
     Active Substance: INSULIN LISPRO
     Indication: DRUG THERAPY
  3. SYNTHROID [Concomitant]
     Active Substance: LEVOTHYROXINE SODIUM
     Indication: HYPOTHYROIDISM
  4. ASACOL [Concomitant]
     Active Substance: MESALAMINE
     Indication: COLITIS
  5. BENTYL [Concomitant]
     Active Substance: DICYCLOMINE HYDROCHLORIDE
     Indication: COLITIS
  6. VENLAFAXINE [Concomitant]
     Active Substance: VENLAFAXINE HYDROCHLORIDE
     Indication: DEPRESSION
  7. TRAMADOL [Concomitant]
     Active Substance: TRAMADOL
     Indication: PAIN
  8. LANTUS [Concomitant]
     Active Substance: INSULIN GLARGINE
     Indication: BLOOD GLUCOSE INCREASED
  9. HUMIRA [Suspect]
     Active Substance: ADALIMUMAB
     Dates: start: 201310
  10. NEXIUM [Concomitant]
     Active Substance: ESOMEPRAZOLE MAGNESIUM
     Indication: GASTRIC DISORDER
  11. DELZICOL [Concomitant]
     Active Substance: MESALAMINE
     Indication: COLITIS
  12. LANTUS [Concomitant]
     Active Substance: INSULIN GLARGINE
     Indication: DRUG THERAPY
  13. HUMALOG [Concomitant]
     Active Substance: INSULIN LISPRO
     Indication: BLOOD GLUCOSE INCREASED
     Dosage: PRN

REACTIONS (8)
  - Wrong technique in drug usage process [Unknown]
  - Fatigue [Unknown]
  - Diarrhoea [Unknown]
  - Device issue [Unknown]
  - Injection site haemorrhage [Not Recovered/Not Resolved]
  - C-reactive protein increased [Not Recovered/Not Resolved]
  - Blood cholesterol increased [Not Recovered/Not Resolved]
  - Palindromic rheumatism [Not Recovered/Not Resolved]

NARRATIVE: CASE EVENT DATE: 201301
